FAERS Safety Report 18302621 (Version 1)
Quarter: 2020Q3

REPORT INFORMATION
  Report Type: Spontaneous
  Country: FR (occurrence: FR)
  Receive Date: 20200923
  Receipt Date: 20200923
  Transmission Date: 20201103
  Serious: Yes (Other)
  Sender: FDA-Public Use
  Company Number: FR-LUPIN PHARMACEUTICALS INC.-2020-06124

PATIENT
  Age: 64 Year
  Sex: Female

DRUGS (2)
  1. SULFAMETHOXAZOLE AND TRIMETHOPRIM [Suspect]
     Active Substance: SULFAMETHOXAZOLE\TRIMETHOPRIM
     Indication: RESPIRATORY DISORDER
     Dosage: UNK
     Route: 065
  2. PEMBROLIZUMAB. [Suspect]
     Active Substance: PEMBROLIZUMAB
     Indication: RESPIRATORY DISORDER
     Dosage: UNK
     Route: 065

REACTIONS (2)
  - Rash erythematous [Recovered/Resolved]
  - Toxic skin eruption [Recovered/Resolved]
